FAERS Safety Report 6887657-0 (Version None)
Quarter: 2010Q3

REPORT INFORMATION
  Report Type: 
  Country: None (occurrence: None)
  Receive Date: 20100730
  Receipt Date: 20100723
  Transmission Date: 20110219
  Serious: Yes (Other)
  Sender: FDA-Public Use
  Company Number: US-AMGEN-QUU426624

PATIENT
  Sex: Female

DRUGS (1)
  1. ENBREL [Suspect]
     Indication: RHEUMATOID ARTHRITIS
     Dates: start: 20021202

REACTIONS (6)
  - DEHYDRATION [None]
  - ERYTHEMA [None]
  - FEELING ABNORMAL [None]
  - HEAT STROKE [None]
  - INJECTION SITE URTICARIA [None]
  - PRURITUS [None]
